FAERS Safety Report 8389985-9 (Version None)
Quarter: 2012Q2

REPORT INFORMATION
  Report Type: 
  Country: None (occurrence: None)
  Receive Date: 20120529
  Receipt Date: 20120521
  Transmission Date: 20120825
  Serious: No
  Sender: FDA-Public Use
  Company Number: US-PFIZER INC-2012123160

PATIENT
  Sex: Female
  Weight: 53 kg

DRUGS (4)
  1. ASPIRIN [Concomitant]
     Indication: TRANSIENT ISCHAEMIC ATTACK
     Dosage: 325 MG, 1X/DAY
  2. NORVASC [Suspect]
     Indication: HYPERTENSION
     Dosage: 5 MG, 2X/DAY
     Route: 048
  3. SYNTHROID [Concomitant]
     Indication: HYPOTHYROIDISM
     Dosage: 75 UG, 1X/DAY
  4. PROTONIX [Concomitant]
     Indication: ABDOMINAL SYMPTOM
     Dosage: 40 MG, 1X/DAY

REACTIONS (2)
  - BLOOD CHOLESTEROL INCREASED [None]
  - HAEMORRHOIDS [None]
